FAERS Safety Report 25073086 (Version 1)
Quarter: 2025Q1

REPORT INFORMATION
  Report Type: Spontaneous
  Country: FR (occurrence: FR)
  Receive Date: 20250313
  Receipt Date: 20250313
  Transmission Date: 20250408
  Serious: Yes (Other)
  Sender: CELLTRION
  Company Number: FR-ABBVIE-5919816

PATIENT

DRUGS (1)
  1. ADALIMUMAB [Suspect]
     Active Substance: ADALIMUMAB
     Indication: Crohn^s disease
     Route: 058

REACTIONS (8)
  - Small intestinal stenosis [Unknown]
  - General physical health deterioration [Unknown]
  - Disease recurrence [Unknown]
  - Gastrointestinal disorder [Unknown]
  - Diarrhoea [Unknown]
  - Weight decreased [Unknown]
  - Abdominal pain [Unknown]
  - Drug ineffective [Unknown]
